FAERS Safety Report 24629093 (Version 1)
Quarter: 2024Q4

REPORT INFORMATION
  Report Type: Spontaneous
  Country: US (occurrence: US)
  Receive Date: 20241118
  Receipt Date: 20241118
  Transmission Date: 20250114
  Serious: No
  Sender: AUROBINDO
  Company Number: US-AUROBINDO-AUR-APL-2024-042703

PATIENT
  Age: 54 Year
  Sex: Male

DRUGS (1)
  1. CLONAZEPAM [Suspect]
     Active Substance: CLONAZEPAM
     Indication: Product used for unknown indication
     Dosage: 1 DOSAGE FORM, TWO TIMES A DAY (TAKE 1 TABLET BY MOUTH 2 TIMES A DAY)
     Route: 048

REACTIONS (2)
  - Drug screen false positive [Unknown]
  - Tachycardia [Unknown]
